FAERS Safety Report 9525123 (Version 1)
Quarter: 2013Q3

REPORT INFORMATION
  Report Type: Spontaneous
  Country: SE (occurrence: SE)
  Receive Date: 20130916
  Receipt Date: 20130916
  Transmission Date: 20140515
  Serious: Yes (Hospitalization, Other)
  Sender: FDA-Public Use
  Company Number: SE-ELI_LILLY_AND_COMPANY-SE201309002261

PATIENT
  Sex: Female

DRUGS (3)
  1. CYMBALTA [Suspect]
     Indication: MAJOR DEPRESSION
     Dosage: 60 MG, UNKNOWN
     Dates: start: 201203
  2. CYMBALTA [Suspect]
     Indication: GENERALISED ANXIETY DISORDER
  3. CYMBALTA [Suspect]
     Indication: DIABETIC NEUROPATHY

REACTIONS (3)
  - Abortion spontaneous [Recovered/Resolved]
  - Pregnancy with advanced maternal age [Recovered/Resolved]
  - Maternal exposure during pregnancy [Recovered/Resolved]
